FAERS Safety Report 13472591 (Version 1)
Quarter: 2017Q2

REPORT INFORMATION
  Report Type: Spontaneous
  Country: CN (occurrence: CN)
  Receive Date: 20170424
  Receipt Date: 20170424
  Transmission Date: 20170830
  Serious: Yes (Other)
  Sender: FDA-Public Use
  Company Number: CN-ASTRAZENECA-2017SE41816

PATIENT
  Age: 18452 Day
  Sex: Female
  Weight: 60 kg

DRUGS (3)
  1. SODIUM CHLORIDE. [Concomitant]
     Active Substance: SODIUM CHLORIDE
     Indication: MEDICATION DILUTION
     Dosage: 0.9%, 3 ML TWO TIMES A DAY
     Route: 055
     Dates: start: 20161212, end: 20161212
  2. BUDESONIDE. [Suspect]
     Active Substance: BUDESONIDE
     Indication: BRONCHITIS
     Dosage: 1 MG/2 ML, TWO TIMES A DAY
     Route: 055
     Dates: start: 20161212, end: 20161212
  3. TERBUTALINE SULFATE. [Suspect]
     Active Substance: TERBUTALINE SULFATE
     Indication: BRONCHITIS
     Dosage: 5 MG/2 ML, TWO TIMES A DAY
     Route: 055
     Dates: start: 20161212, end: 20161212

REACTIONS (2)
  - Dizziness [Recovered/Resolved]
  - Tremor [Recovered/Resolved]

NARRATIVE: CASE EVENT DATE: 20161212
